FAERS Safety Report 8478997-2 (Version None)
Quarter: 2012Q2

REPORT INFORMATION
  Report Type: 
  Country: None (occurrence: None)
  Receive Date: 20120629
  Receipt Date: 20120626
  Transmission Date: 20120825
  Serious: Yes (Hospitalization)
  Sender: FDA-Public Use
  Company Number: CH-MERCK-1206USA04631

PATIENT
  Age: 43 Year
  Sex: Male
  Weight: 80 kg

DRUGS (6)
  1. AMLODIPINE [Concomitant]
     Indication: HYPERTENSIVE HEART DISEASE
     Route: 048
  2. XARELTO [Suspect]
     Indication: ATRIAL FLUTTER
     Route: 048
     Dates: start: 20120522, end: 20120523
  3. XARELTO [Suspect]
     Indication: ATRIAL FIBRILLATION
     Route: 048
     Dates: start: 20120522, end: 20120523
  4. SYMBICORT [Concomitant]
     Indication: ASTHMA
     Route: 055
  5. SINGULAIR [Suspect]
     Indication: ASTHMA
     Route: 048
  6. CITALOPRAM HYDROBROMIDE [Suspect]
     Indication: DEPRESSION
     Route: 048

REACTIONS (1)
  - GRAND MAL CONVULSION [None]
